FAERS Safety Report 21534574 (Version 2)
Quarter: 2022Q4

REPORT INFORMATION
  Report Type: Report from Study
  Country: GB (occurrence: GB)
  Receive Date: 20221101
  Receipt Date: 20221220
  Transmission Date: 20230113
  Serious: Yes (Death, Other)
  Sender: FDA-Public Use
  Company Number: GB-BAYER-2022P019328

PATIENT
  Age: 95 Year
  Sex: Male

DRUGS (16)
  1. EYLEA [Suspect]
     Active Substance: AFLIBERCEPT
     Indication: Neovascular age-related macular degeneration
     Dosage: 50 UL, ONCE, RIGHT EYE; SOLUTION FOR INJECTION
     Route: 031
     Dates: start: 20200316, end: 20200316
  2. EYLEA [Suspect]
     Active Substance: AFLIBERCEPT
     Dosage: 50 UL, ONCE, RIGHT EYE; SOLUTION FOR INJECTION
     Route: 031
     Dates: start: 20200417, end: 20200417
  3. EYLEA [Suspect]
     Active Substance: AFLIBERCEPT
     Dosage: 50 UL, ONCE, RIGHT EYE; SOLUTION FOR INJECTION
     Route: 031
     Dates: start: 20200615, end: 20200615
  4. EYLEA [Suspect]
     Active Substance: AFLIBERCEPT
     Dosage: 50 UL, ONCE, RIGHT EYE; SOLUTION FOR INJECTION
     Route: 031
     Dates: start: 20200810, end: 20200810
  5. EYLEA [Suspect]
     Active Substance: AFLIBERCEPT
     Dosage: 50 UL, ONCE, RIGHT EYE; SOLUTION FOR INJECTION
     Route: 031
     Dates: start: 20201110, end: 20201110
  6. EYLEA [Suspect]
     Active Substance: AFLIBERCEPT
     Dosage: 50 UL, ONCE, RIGHT EYE; SOLUTION FOR INJECTION
     Route: 031
     Dates: start: 20210208, end: 20210208
  7. EYLEA [Suspect]
     Active Substance: AFLIBERCEPT
     Dosage: 50 UL, ONCE, RIGHT EYE; SOLUTION FOR INJECTION
     Route: 031
     Dates: start: 20210505, end: 20210505
  8. EYLEA [Suspect]
     Active Substance: AFLIBERCEPT
     Dosage: 50 UL, ONCE, RIGHT EYE; SOLUTION FOR INJECTION
     Route: 031
     Dates: start: 20210729, end: 20210729
  9. EYLEA [Suspect]
     Active Substance: AFLIBERCEPT
     Dosage: 50 UL, ONCE, RIGHT EYE; SOLUTION FOR INJECTION
     Route: 031
     Dates: start: 20210909, end: 20210909
  10. EYLEA [Suspect]
     Active Substance: AFLIBERCEPT
     Dosage: 50 UL, ONCE, RIGHT EYE; SOLUTION FOR INJECTION
     Route: 031
     Dates: start: 20211021, end: 20211021
  11. EYLEA [Suspect]
     Active Substance: AFLIBERCEPT
     Dosage: 50 UL, ONCE, RIGHT EYE; SOLUTION FOR INJECTION
     Route: 031
     Dates: start: 20211123, end: 20211123
  12. EYLEA [Suspect]
     Active Substance: AFLIBERCEPT
     Dosage: 50 UL, ONCE, RIGHT EYE; SOLUTION FOR INJECTION
     Route: 031
     Dates: start: 20211222, end: 20211222
  13. EYLEA [Suspect]
     Active Substance: AFLIBERCEPT
     Dosage: 50 UL, ONCE, RIGHT EYE; SOLUTION FOR INJECTION
     Route: 031
     Dates: start: 20220216, end: 20220216
  14. EYLEA [Suspect]
     Active Substance: AFLIBERCEPT
     Dosage: 50 UL, ONCE, RIGHT EYE; SOLUTION FOR INJECTION
     Route: 031
     Dates: start: 20220329, end: 20220329
  15. EYLEA [Suspect]
     Active Substance: AFLIBERCEPT
     Dosage: 50 UL, RIGHT EYE; SOLUTION FOR INJECTION
     Route: 031
     Dates: start: 20220614
  16. CARBOMER [Concomitant]
     Active Substance: CARBOMER
     Indication: Prophylaxis
     Dosage: 1 DF, QD
     Route: 031
     Dates: start: 20200810

REACTIONS (2)
  - Death [Fatal]
  - Retinal haemorrhage [Not Recovered/Not Resolved]

NARRATIVE: CASE EVENT DATE: 20211021
